FAERS Safety Report 9057551 (Version 1)
Quarter: 2013Q1

REPORT INFORMATION
  Report Type: Spontaneous
  Country: US (occurrence: None)
  Receive Date: 20130204
  Receipt Date: 20130204
  Transmission Date: 20140127
  Serious: Yes (Other)
  Sender: FDA-Public Use
  Company Number: None

PATIENT
  Age: 70 Year
  Sex: Female
  Weight: 49.9 kg

DRUGS (1)
  1. EVISTA [Suspect]
     Dates: start: 19980601, end: 20120320

REACTIONS (3)
  - Ovarian cancer [None]
  - Splenectomy [None]
  - Colectomy [None]
